FAERS Safety Report 16886881 (Version 1)
Quarter: 2019Q4

REPORT INFORMATION
  Report Type: Report from Study
  Country: US (occurrence: US)
  Receive Date: 20191004
  Receipt Date: 20191004
  Transmission Date: 20200122
  Serious: Yes (Hospitalization, Other)
  Sender: FDA-Public Use
  Company Number: US-AMGEN-USACT2019051985

PATIENT
  Age: 27 Year
  Sex: Female
  Weight: 93.4 kg

DRUGS (4)
  1. IPILIMUMAB [Suspect]
     Active Substance: IPILIMUMAB
     Indication: B PRECURSOR TYPE ACUTE LEUKAEMIA
     Dosage: 1 MILLIGRAM/KILOGRAM
     Route: 042
     Dates: start: 20190226
  2. BLINATUMOMAB [Suspect]
     Active Substance: BLINATUMOMAB
     Indication: B PRECURSOR TYPE ACUTE LEUKAEMIA
     Dosage: 9 MICROGRAM, QD
     Route: 042
     Dates: start: 20190226
  3. BLINATUMOMAB [Suspect]
     Active Substance: BLINATUMOMAB
     Dosage: 28 MICROGRAM, QD
     Route: 042
  4. NIVOLUMAB [Suspect]
     Active Substance: NIVOLUMAB
     Indication: B PRECURSOR TYPE ACUTE LEUKAEMIA
     Dosage: 240 MILLIGRAM
     Route: 042
     Dates: start: 20190226

REACTIONS (6)
  - Graft versus host disease in gastrointestinal tract [Recovered/Resolved]
  - Nasal congestion [Recovered/Resolved]
  - Diarrhoea [Recovered/Resolved]
  - Productive cough [Recovered/Resolved]
  - Stomatitis [Recovered/Resolved]
  - Sinusitis [Recovered/Resolved]

NARRATIVE: CASE EVENT DATE: 20190319
